FAERS Safety Report 5800213 (Version 26)
Quarter: 2013Q2

REPORT INFORMATION
  Report Type: Spontaneous
  Country: US (occurrence: US)
  Receive Date: 20050520
  Receipt Date: 20130527
  Transmission Date: 20140414
  Serious: Yes (Hospitalization, Other)
  Sender: FDA-Public Use
  Company Number: PHEH2005US01799

PATIENT
  Age: 73 Year
  Sex: Female
  Weight: 55.1 kg

DRUGS (43)
  1. AREDIA [Suspect]
     Dosage: 90 MG, QW4
     Route: 042
     Dates: start: 200010, end: 200107
  2. AREDIA [Suspect]
     Dosage: 90 MG, QW4
     Route: 042
     Dates: start: 200112, end: 2005
  3. FOSAMAX [Concomitant]
     Dates: start: 20050811
  4. NEURONTIN [Concomitant]
     Dosage: 400 MG, BID
  5. TOPROL XL [Concomitant]
     Dosage: 50 MG, BID
  6. PRILOSEC [Concomitant]
     Dosage: 40 MG, QD
  7. EVISTA [Concomitant]
  8. ZOCOR ^DIECKMANN^ [Concomitant]
  9. ASPIRIN ^BAYER^ [Concomitant]
  10. CALCIUM [Concomitant]
  11. VITAMIN D [Concomitant]
  12. CHEMOTHERAPEUTICS NOS [Concomitant]
  13. FERROUS SULFATE [Concomitant]
  14. FOLIC ACID [Concomitant]
  15. GABAPENTIN [Concomitant]
  16. FENTANYL [Concomitant]
  17. COUMADIN [Concomitant]
  18. REVLIMID [Concomitant]
  19. DYAZIDE [Concomitant]
  20. NEXIUM [Concomitant]
  21. ASPIRIN ^BAYER^ [Concomitant]
  22. TRIAMTERENE [Concomitant]
  23. MULTIVITAMINS [Concomitant]
  24. PLAVIX [Concomitant]
  25. NORVASC                                 /DEN/ [Concomitant]
  26. VITAMIN C [Concomitant]
  27. PROCRIT [Concomitant]
  28. AVANDIA [Concomitant]
  29. HYDROCHLOROTHIAZIDE [Concomitant]
  30. LASIX [Concomitant]
  31. ATIVAN [Concomitant]
  32. ATARAX                                  /CAN/ [Concomitant]
  33. DILAUDID [Concomitant]
  34. AVELOX [Concomitant]
  35. PREDNISONE [Concomitant]
  36. AVALOX [Concomitant]
     Dosage: 400 MG, QD
  37. ELAVIL [Concomitant]
  38. NEUPOGEN [Concomitant]
  39. COLACE [Concomitant]
  40. TYLENOL [Concomitant]
  41. DECADRON                                /CAN/ [Concomitant]
  42. PEPCID [Concomitant]
  43. RESTORIL [Concomitant]

REACTIONS (110)
  - Spinal compression fracture [Unknown]
  - Kyphosis [Unknown]
  - Kyphoscoliosis [Unknown]
  - Back pain [Unknown]
  - Osteonecrosis of jaw [Unknown]
  - Bone disorder [Unknown]
  - Osteomyelitis [Unknown]
  - Purulent discharge [Unknown]
  - Dysgeusia [Unknown]
  - Breath odour [Unknown]
  - Pain in jaw [Unknown]
  - Dental fistula [Unknown]
  - Sinus polyp [Unknown]
  - Tooth loss [Unknown]
  - Oedema mouth [Unknown]
  - Stomatitis [Unknown]
  - Tooth abscess [Unknown]
  - Gingival recession [Unknown]
  - Bone loss [Unknown]
  - Headache [Recovered/Resolved]
  - Dental caries [Unknown]
  - Tongue oedema [Unknown]
  - Denture wearer [Unknown]
  - Osteopenia [Unknown]
  - Osteoporosis [Unknown]
  - Renal failure [Unknown]
  - Renal impairment [Unknown]
  - Blood creatinine increased [Recovered/Resolved]
  - Uterine polyp [Unknown]
  - Atelectasis [Unknown]
  - Rib fracture [Unknown]
  - Intervertebral disc protrusion [Unknown]
  - Intervertebral disc degeneration [Unknown]
  - Osteolysis [Unknown]
  - Nasal polyps [Unknown]
  - Nasal septum deviation [Unknown]
  - Soft tissue disorder [Unknown]
  - Plasmacytosis [Unknown]
  - Cataract [Unknown]
  - Infection [Unknown]
  - Pharyngo-oesophageal diverticulum [Unknown]
  - Dysphagia [Unknown]
  - Haemorrhoids [Unknown]
  - Sinus bradycardia [Unknown]
  - Transient ischaemic attack [Unknown]
  - Left atrial dilatation [Unknown]
  - Mitral valve incompetence [Unknown]
  - Carotid artery disease [Unknown]
  - Oedema [Unknown]
  - Nausea [Unknown]
  - Cardiac valve sclerosis [Unknown]
  - Renal cyst [Unknown]
  - Cerebrovascular accident [Unknown]
  - Device related infection [Unknown]
  - Large intestine polyp [Unknown]
  - Myopathy [Unknown]
  - Chronic obstructive pulmonary disease [Unknown]
  - Aortic aneurysm [Unknown]
  - Diverticulum [Unknown]
  - Candida infection [Unknown]
  - Pyrexia [Unknown]
  - Febrile neutropenia [Unknown]
  - Sinusitis [Unknown]
  - Lymphadenopathy [Unknown]
  - Photophobia [Unknown]
  - Lung hyperinflation [Unknown]
  - Aortic arteriosclerosis [Unknown]
  - Aortic calcification [Unknown]
  - Astigmatism [Unknown]
  - Presbyopia [Unknown]
  - Myopia [Unknown]
  - Myelodysplastic syndrome [Unknown]
  - Speech disorder [Unknown]
  - Basal cell carcinoma [Unknown]
  - Urinary retention [Unknown]
  - Brain oedema [Unknown]
  - Pleural effusion [Unknown]
  - Hiatus hernia [Unknown]
  - Migraine [Unknown]
  - Hemiparesis [Unknown]
  - Dysphonia [Unknown]
  - Depression [Unknown]
  - Hypercholesterolaemia [Unknown]
  - Rash erythematous [Unknown]
  - Dry eye [Unknown]
  - Eye pain [Unknown]
  - Rhinitis allergic [Unknown]
  - Cerumen impaction [Unknown]
  - Epistaxis [Unknown]
  - Fall [Unknown]
  - Anaemia [Unknown]
  - Dyspnoea exertional [Unknown]
  - Hepatic steatosis [Unknown]
  - Diarrhoea [Recovering/Resolving]
  - Musculoskeletal chest pain [Unknown]
  - Neuropathy peripheral [Unknown]
  - Tongue discolouration [Unknown]
  - Oropharyngeal pain [Unknown]
  - Tachycardia [Unknown]
  - Weight decreased [Unknown]
  - Bone fragmentation [Unknown]
  - Excessive granulation tissue [Unknown]
  - Inflammation [Unknown]
  - Respiratory tract inflammation [Unknown]
  - Pulmonary fibrosis [Unknown]
  - Coronary artery disease [Unknown]
  - Arteriosclerosis coronary artery [Unknown]
  - Arthritis [Unknown]
  - Gingival bleeding [Unknown]
  - Dry mouth [Unknown]
